FAERS Safety Report 8343094-3 (Version None)
Quarter: 2012Q2

REPORT INFORMATION
  Report Type: 
  Country: None (occurrence: None)
  Receive Date: 20120508
  Receipt Date: 20120503
  Transmission Date: 20120825
  Serious: Yes (Life-Threatening)
  Sender: FDA-Public Use
  Company Number: DK-ASTELLAS-2011US008258

PATIENT
  Sex: Female
  Weight: 54 kg

DRUGS (10)
  1. SENOKOT [Concomitant]
     Indication: CONSTIPATION
     Dosage: UNK
     Route: 065
  2. DECADRON [Concomitant]
     Indication: PRODUCT USED FOR UNKNOWN INDICATION
     Dosage: 8 MG, UID/QD
     Route: 065
     Dates: start: 20110527
  3. ERLOTINIB HYDROCHLORIDE [Suspect]
     Indication: GLIOBLASTOMA MULTIFORME
     Dosage: 150 MG, BID
     Route: 048
     Dates: start: 20110831, end: 20111025
  4. CARVEDILOL [Suspect]
     Indication: PRODUCT USED FOR UNKNOWN INDICATION
     Dosage: 3.125 MG, UID/QD
     Route: 065
     Dates: start: 20111014
  5. BEVACIZUMAB [Suspect]
     Dosage: 10 UNK, Q2W
     Route: 042
     Dates: start: 20111115
  6. LEVETIRACETAM [Concomitant]
     Indication: PRODUCT USED FOR UNKNOWN INDICATION
     Dosage: 1000 MG, UID/QD
     Route: 065
     Dates: start: 20110527
  7. ERLOTINIB HYDROCHLORIDE [Suspect]
     Dosage: UNK
     Route: 048
     Dates: start: 20111115
  8. VYTORIN [Concomitant]
     Indication: PRODUCT USED FOR UNKNOWN INDICATION
     Dosage: 10/20 MG DAILY
     Route: 065
  9. BEVACIZUMAB [Suspect]
     Indication: GLIOBLASTOMA MULTIFORME
     Dosage: 10 MG/KG, EVERY 2 WEEKS
     Route: 042
     Dates: start: 20110831, end: 20111012
  10. ZOFRAN [Concomitant]
     Indication: NAUSEA
     Dosage: 8 MG, PRN
     Route: 065
     Dates: start: 20110520

REACTIONS (2)
  - OFF LABEL USE [None]
  - HYPOKALAEMIA [None]
